FAERS Safety Report 16638845 (Version 2)
Quarter: 2019Q3

REPORT INFORMATION
  Report Type: Report from Study
  Country: JP (occurrence: JP)
  Receive Date: 20190726
  Receipt Date: 20190729
  Transmission Date: 20191004
  Serious: Yes (Other)
  Sender: FDA-Public Use
  Company Number: JP-TAKEDA-2019TUS045311

PATIENT
  Sex: Female

DRUGS (7)
  1. MYCOPHENOLATE MOFETIL. [Concomitant]
     Active Substance: MYCOPHENOLATE MOFETIL
     Dosage: UNK
     Route: 048
  2. TACROLIMUS. [Concomitant]
     Active Substance: TACROLIMUS
     Dosage: UNK
     Route: 065
  3. GLOBULIN [Concomitant]
     Dosage: UNK
     Route: 065
  4. BORTEZOMIB. [Suspect]
     Active Substance: BORTEZOMIB
     Indication: PRODUCT USED FOR UNKNOWN INDICATION
     Dosage: 1.3 MILLIGRAM/SQ. METER
     Route: 058
  5. RITUXIMAB RECOMBINANT [Concomitant]
     Active Substance: RITUXIMAB
     Dosage: 200 MILLIGRAM
     Route: 042
  6. METHYLPREDNISOLONE. [Concomitant]
     Active Substance: METHYLPREDNISOLONE
     Dosage: UNK
     Route: 065
  7. BASILIXIMAB RECOMBINANT [Concomitant]
     Dosage: UNK
     Route: 065

REACTIONS (4)
  - Off label use [Unknown]
  - Cytomegalovirus viraemia [Unknown]
  - Urinary tract infection [Unknown]
  - Product use issue [Unknown]
